FAERS Safety Report 9733207 (Version 1)
Quarter: 2013Q4

REPORT INFORMATION
  Report Type: Report from Study
  Country: US (occurrence: US)
  Receive Date: 20131205
  Receipt Date: 20131205
  Transmission Date: 20140711
  Serious: Yes (Hospitalization)
  Sender: FDA-Public Use
  Company Number: PHEH2013US025179

PATIENT
  Age: 76 Year
  Sex: Male

DRUGS (14)
  1. AFINITOR [Suspect]
     Indication: RENAL CANCER
     Dosage: 10 MG, QD
     Dates: start: 20121106, end: 20131105
  2. ALPRAZOLAM [Concomitant]
  3. ASPIRIN [Concomitant]
  4. CALCITRIOL [Concomitant]
  5. CALCIUM ACETATE [Concomitant]
  6. PLAVIX [Concomitant]
  7. HUMALOG [Concomitant]
  8. LANTUS [Concomitant]
  9. LOVASTATIN [Concomitant]
  10. LEVOTHYROXINE [Concomitant]
  11. LEXAPRO [Concomitant]
  12. LIDOCAINE [Concomitant]
  13. LOSARTAN [Concomitant]
  14. PERIACTIN [Concomitant]

REACTIONS (2)
  - Cerebrovascular accident [Recovered/Resolved]
  - Dysphagia [Unknown]
